FAERS Safety Report 6813255-0 (Version None)
Quarter: 2010Q3

REPORT INFORMATION
  Report Type: 
  Country: None (occurrence: None)
  Receive Date: 20100701
  Receipt Date: 20100622
  Transmission Date: 20110219
  Serious: Yes (Other)
  Sender: FDA-Public Use
  Company Number: US-PFIZER INC-2010078623

PATIENT
  Sex: Female

DRUGS (2)
  1. LYRICA [Suspect]
     Dosage: 25 MG, DAILY
     Route: 048
     Dates: start: 20100608
  2. BACTRIM [Concomitant]
     Dosage: UNK

REACTIONS (1)
  - BODY TEMPERATURE DECREASED [None]
